FAERS Safety Report 7630045-X (Version None)
Quarter: 2011Q3

REPORT INFORMATION
  Report Type: 
  Country: None (occurrence: None)
  Receive Date: 20110722
  Receipt Date: 20110412
  Transmission Date: 20111222
  Serious: Yes (Hospitalization)
  Sender: FDA-Public Use
  Company Number: DE-AMGEN-DEUSP2011020002

PATIENT
  Age: 57 Year
  Sex: Female

DRUGS (2)
  1. ENBREL [Suspect]
     Dosage: 50 MG, UNK
     Dates: start: 20100101
  2. ENBREL [Suspect]
     Indication: PRODUCT USED FOR UNKNOWN INDICATION
     Dosage: 50 MG, UNK
     Dates: start: 20100223, end: 20100223

REACTIONS (4)
  - DYSPNOEA [None]
  - MUSCULOSKELETAL PAIN [None]
  - ASTHMA [None]
  - PAIN IN EXTREMITY [None]
